FAERS Safety Report 11888241 (Version 1)
Quarter: 2016Q1

REPORT INFORMATION
  Report Type: Spontaneous
  Country: GB (occurrence: GB)
  Receive Date: 20160105
  Receipt Date: 20160105
  Transmission Date: 20160526
  Serious: Yes (Other)
  Sender: FDA-Public Use
  Company Number: PHFR2015GB009963

PATIENT
  Sex: Male

DRUGS (2)
  1. EKLIRA GENUAIR [Suspect]
     Active Substance: ACLIDINIUM BROMIDE
     Indication: ASTHMA
     Dosage: 322 UG, UNK
     Route: 065
  2. SEEBRI BREEZHALER [Suspect]
     Active Substance: GLYCOPYRROLATE
     Indication: ASTHMA
     Dosage: 44 UG, UNK
     Route: 065

REACTIONS (5)
  - Heart rate increased [Unknown]
  - Palpitations [Unknown]
  - Nasal congestion [Unknown]
  - Sinus congestion [Unknown]
  - Blood pressure increased [Unknown]
